FAERS Safety Report 6275325-8 (Version None)
Quarter: 2009Q3

REPORT INFORMATION
  Report Type: 
  Country: None (occurrence: None)
  Receive Date: 20090721
  Receipt Date: 20090709
  Transmission Date: 20100115
  Serious: Yes (Hospitalization)
  Sender: FDA-Public Use
  Company Number: B0580434A

PATIENT
  Sex: Female

DRUGS (12)
  1. VALTREX [Suspect]
     Indication: HERPES ZOSTER
     Dosage: 500MG THREE TIMES PER WEEK
     Route: 048
     Dates: start: 20090618, end: 20090622
  2. ADALAT [Concomitant]
     Route: 048
  3. ARTIST [Concomitant]
     Route: 048
  4. OLMETEC [Concomitant]
     Route: 048
  5. MUCOSTA [Concomitant]
     Route: 048
  6. VOLTAREN [Concomitant]
     Route: 054
  7. EPADEL [Concomitant]
     Route: 048
  8. UNKNOWN MEDICATION [Concomitant]
     Route: 048
  9. CARDENALIN [Concomitant]
     Route: 048
  10. ALTAT [Concomitant]
     Route: 065
  11. NELBON [Concomitant]
     Route: 048
  12. ANDERM [Concomitant]
     Route: 061

REACTIONS (7)
  - CEREBRAL INFARCTION [None]
  - DIPLOPIA [None]
  - DIZZINESS [None]
  - DYSARTHRIA [None]
  - DYSLALIA [None]
  - HALLUCINATION, AUDITORY [None]
  - MUSCULAR WEAKNESS [None]
